FAERS Safety Report 18053291 (Version 2)
Quarter: 2020Q3

REPORT INFORMATION
  Report Type: Spontaneous
  Country: TW (occurrence: TW)
  Receive Date: 20200722
  Receipt Date: 20200814
  Transmission Date: 20201103
  Serious: Yes (Hospitalization, Other)
  Sender: FDA-Public Use
  Company Number: TW-ROCHE-2646742

PATIENT
  Age: 70 Year
  Sex: Female
  Weight: 62.6 kg

DRUGS (12)
  1. BISOPROLOL [Concomitant]
     Active Substance: BISOPROLOL
     Indication: HYPERTENSION
     Route: 048
     Dates: start: 20200122
  2. TRACETON [Concomitant]
     Indication: RHEUMATOID ARTHRITIS
     Route: 048
     Dates: start: 20180711
  3. CELEBREX [Concomitant]
     Active Substance: CELECOXIB
     Indication: RHEUMATOID ARTHRITIS
     Route: 048
     Dates: start: 20190515, end: 20200609
  4. PHYTONADIONE. [Concomitant]
     Active Substance: PHYTONADIONE
     Indication: DIVERTICULUM
  5. XYZAL [Concomitant]
     Active Substance: LEVOCETIRIZINE DIHYDROCHLORIDE
     Indication: PROPHYLAXIS
     Route: 048
     Dates: start: 20180620
  6. FERRIN [Concomitant]
     Indication: ANAEMIA
     Route: 048
     Dates: start: 20180516
  7. TRANSAMIN [Concomitant]
     Active Substance: TRANEXAMIC ACID
     Indication: ANAEMIA
     Route: 048
     Dates: start: 20200321, end: 20200609
  8. PANTOLOC [Concomitant]
     Active Substance: PANTOPRAZOLE SODIUM
     Indication: DIVERTICULUM
     Dosage: ACQD
     Route: 048
     Dates: start: 20200527
  9. ACTEMRA [Suspect]
     Active Substance: TOCILIZUMAB
     Indication: RHEUMATOID ARTHRITIS
     Route: 042
     Dates: start: 20131105, end: 20200513
  10. CELEBREX [Suspect]
     Active Substance: CELECOXIB
     Indication: RHEUMATOID ARTHRITIS
     Route: 048
     Dates: start: 20190515, end: 20200609
  11. PHYTONADIONE. [Concomitant]
     Active Substance: PHYTONADIONE
     Indication: PROPHYLAXIS
     Dosage: STAT
     Route: 042
     Dates: start: 20200513, end: 20200609
  12. PREDNISOLONE. [Concomitant]
     Active Substance: PREDNISOLONE
     Indication: RHEUMATOID ARTHRITIS
     Route: 048
     Dates: start: 20150812

REACTIONS (4)
  - Diverticulum intestinal [Recovered/Resolved]
  - Chronic kidney disease [Unknown]
  - Angiodysplasia [Recovered/Resolved]
  - Hepatic steatosis [Unknown]

NARRATIVE: CASE EVENT DATE: 2020
